FAERS Safety Report 7164759 (Version 12)
Quarter: 2013Q2

REPORT INFORMATION
  Report Type: Report from Study
  Country: BE (occurrence: BE)
  Receive Date: 20091102
  Receipt Date: 20130506
  Transmission Date: 20140414
  Serious: Yes (Death, Hospitalization, Disabling)
  Sender: FDA-Public Use
  Company Number: PHHO2009BE13329

PATIENT
  Age: 59 Year
  Sex: Male
  Weight: 71 kg

DRUGS (5)
  1. AFINITOR [Suspect]
     Indication: METASTATIC RENAL CELL CARCINOMA
     Dosage: 10 MG, QD
     Route: 048
     Dates: start: 20090811
  2. AFINITOR [Suspect]
     Dosage: 5 MG, QD
     Route: 048
     Dates: start: 20091007, end: 20091018
  3. AVASTIN [Suspect]
     Indication: METASTATIC RENAL CELL CARCINOMA
     Dosage: 10 MG/KG, QD
     Route: 042
     Dates: start: 20090811
  4. AVASTIN [Suspect]
     Dosage: 10 MG/KG, QD
     Route: 042
     Dates: start: 20091007, end: 20091019
  5. CLEXANE [Concomitant]

REACTIONS (8)
  - Chronic obstructive pulmonary disease [Fatal]
  - Cardiac failure [Fatal]
  - Eastern Cooperative Oncology Group performance status worsened [Fatal]
  - Vomiting [Recovered/Resolved]
  - Nausea [Recovered/Resolved]
  - Decreased appetite [Recovered/Resolved]
  - Abdominal pain [Recovered/Resolved]
  - Stomatitis [Not Recovered/Not Resolved]
